FAERS Safety Report 13225958 (Version 1)
Quarter: 2017Q1

REPORT INFORMATION
  Report Type: Spontaneous
  Country: US (occurrence: US)
  Receive Date: 20170210
  Receipt Date: 20170210
  Transmission Date: 20170428
  Serious: Yes (Life-Threatening, Hospitalization, Other)
  Sender: FDA-Public Use
  Company Number: None

PATIENT
  Age: 68 Year
  Sex: Male
  Weight: 108 kg

DRUGS (2)
  1. MEN^S ONE A DAY VITAMIN [Concomitant]
  2. ZITHROMAX [Suspect]
     Active Substance: AZITHROMYCIN DIHYDRATE
     Indication: BRONCHITIS
     Dosage: ?          QUANTITY:12 CAPSULE(S);?
     Route: 048

REACTIONS (9)
  - Liver injury [None]
  - Blister [None]
  - Skin discolouration [None]
  - Oral disorder [None]
  - Tongue disorder [None]
  - Gingival pain [None]
  - Scar [None]
  - Eye disorder [None]
  - Nerve injury [None]

NARRATIVE: CASE EVENT DATE: 20150506
